FAERS Safety Report 8011216-X (Version None)
Quarter: 2011Q4

REPORT INFORMATION
  Report Type: 
  Country: None (occurrence: None)
  Receive Date: 20111228
  Receipt Date: 20111220
  Transmission Date: 20120403
  Serious: Yes (Other)
  Sender: FDA-Public Use
  Company Number: US-JNJFOC-20111211311

PATIENT

DRUGS (15)
  1. PEGFILGRASTIM [Suspect]
     Route: 058
  2. CYCLOPHOSPHAMIDE [Suspect]
     Indication: B-CELL LYMPHOMA
     Route: 065
  3. LENALIDOMIDE [Suspect]
     Indication: B-CELL LYMPHOMA
     Route: 048
  4. VINCRISTINE [Suspect]
     Indication: B-CELL LYMPHOMA
     Route: 065
  5. VINCRISTINE [Suspect]
     Route: 065
  6. LENALIDOMIDE [Suspect]
     Route: 048
  7. RITUXIMAB [Suspect]
     Route: 065
  8. CYCLOPHOSPHAMIDE [Suspect]
     Route: 065
  9. DOXORUBICIN HCL [Suspect]
     Indication: B-CELL LYMPHOMA
     Route: 042
  10. RITUXIMAB [Suspect]
     Indication: B-CELL LYMPHOMA
     Route: 065
  11. PREDNISONE TAB [Suspect]
     Indication: B-CELL LYMPHOMA
     Route: 065
  12. PREDNISONE TAB [Suspect]
     Route: 065
  13. PEGFILGRASTIM [Suspect]
     Indication: B-CELL LYMPHOMA
     Route: 058
  14. DOXORUBICIN HCL [Suspect]
     Route: 042
  15. ASPIRIN [Concomitant]
     Indication: ANTICOAGULANT THERAPY
     Route: 058

REACTIONS (2)
  - PERIPHERAL MOTOR NEUROPATHY [None]
  - PERIPHERAL SENSORY NEUROPATHY [None]
